FAERS Safety Report 12902564 (Version 1)
Quarter: 2016Q4

REPORT INFORMATION
  Report Type: Spontaneous
  Country: US (occurrence: US)
  Receive Date: 20161101
  Receipt Date: 20161101
  Transmission Date: 20170207
  Serious: No
  Sender: FDA-Public Use
  Company Number: None

PATIENT
  Age: 79 Year
  Sex: Female
  Weight: 78 kg

DRUGS (3)
  1. LIDOCAINE VISCOUS [Suspect]
     Active Substance: LIDOCAINE HYDROCHLORIDE
     Dosage: ?          OTHER FREQUENCY:ONCE;?
     Route: 048
  2. DONNATAL [Suspect]
     Active Substance: ATROPINE SULFATE\HYOSCYAMINE SULFATE\PHENOBARBITAL\SCOPOLAMINE HYDROBROMIDE
     Route: 048
  3. MYLANTA [Suspect]
     Active Substance: ALUMINUM HYDROXIDE\DIMETHICONE\MAGNESIUM HYDROXIDE
     Dosage: ?          OTHER FREQUENCY:ONCE;?
     Route: 048

REACTIONS (2)
  - Dyspnoea [None]
  - Oxygen saturation decreased [None]

NARRATIVE: CASE EVENT DATE: 20161022
